FAERS Safety Report 7094264-6 (Version None)
Quarter: 2010Q4

REPORT INFORMATION
  Report Type: 
  Country: None (occurrence: None)
  Receive Date: 20101102
  Receipt Date: 20101021
  Transmission Date: 20110411
  Serious: Yes (Hospitalization)
  Sender: FDA-Public Use
  Company Number: AXC-2010-000269

PATIENT
  Age: 49 Year
  Sex: Male

DRUGS (2)
  1. SUCRALFATE [Suspect]
     Indication: POSTOPERATIVE CARE
     Dosage: 4 G, QD
  2. OMEPRAZOLE [Concomitant]

REACTIONS (6)
  - BLOOD BILIRUBIN INCREASED [None]
  - HAEMATOCRIT DECREASED [None]
  - HAEMOGLOBIN DECREASED [None]
  - OESOPHAGEAL ULCER HAEMORRHAGE [None]
  - POST PROCEDURAL HAEMORRHAGE [None]
  - PROTHROMBIN LEVEL DECREASED [None]
